FAERS Safety Report 6615757-9 (Version None)
Quarter: 2010Q1

REPORT INFORMATION
  Report Type: 
  Country: None (occurrence: None)
  Receive Date: 20100226
  Receipt Date: 20100219
  Transmission Date: 20100710
  Serious: Yes (Death)
  Sender: FDA-Public Use
  Company Number: 2010SP011024

PATIENT
  Age: 33 Year
  Sex: Female

DRUGS (5)
  1. POSACONAZOLE [Suspect]
     Indication: ANTIFUNGAL PROPHYLAXIS
     Dates: end: 20090101
  2. ATRACURIUM BESYLATE [Suspect]
     Indication: LEUKAEMIA
     Dates: end: 20090101
  3. IDARUBICIN HCL [Concomitant]
  4. MEROPENEM [Concomitant]
  5. TEICOPLANIN [Concomitant]

REACTIONS (6)
  - ABDOMINAL PAIN [None]
  - BLOOD BILIRUBIN INCREASED [None]
  - DIARRHOEA [None]
  - DRUG INTERACTION [None]
  - ENTEROBACTER INFECTION [None]
  - SEPTIC SHOCK [None]
